FAERS Safety Report 25242027 (Version 1)
Quarter: 2025Q2

REPORT INFORMATION
  Report Type: Spontaneous
  Country: US (occurrence: US)
  Receive Date: 20250426
  Receipt Date: 20250426
  Transmission Date: 20250716
  Serious: Yes (Other)
  Sender: ABBVIE
  Company Number: US-ABBVIE-6248486

PATIENT
  Sex: Female

DRUGS (2)
  1. REFRESH OPTIVE ADVANCED [Suspect]
     Active Substance: CARBOXYMETHYLCELLULOSE SODIUM\GLYCERIN\POLYSORBATE 80
     Indication: Product used for unknown indication
     Route: 047
     Dates: start: 2025
  2. REFRESH CLASSIC [Suspect]
     Active Substance: POLYVINYL ALCOHOL\POVIDONE
     Indication: Dry eye
     Route: 047

REACTIONS (2)
  - Macular degeneration [Unknown]
  - Product label issue [Unknown]

NARRATIVE: CASE EVENT DATE: 20250101
